FAERS Safety Report 10289518 (Version 2)
Quarter: 2014Q3

REPORT INFORMATION
  Report Type: Report from Study
  Country: CA (occurrence: CA)
  Receive Date: 20140710
  Receipt Date: 20140710
  Transmission Date: 20150326
  Serious: Yes (Death, Hospitalization)
  Sender: FDA-Public Use
  Company Number: PHHY2014CA024984

PATIENT
  Age: 68 Year
  Sex: Female

DRUGS (5)
  1. SANDOSTATIN [Suspect]
     Active Substance: OCTREOTIDE ACETATE
     Indication: OFF LABEL USE
  2. SANDOSTATIN [Suspect]
     Active Substance: OCTREOTIDE ACETATE
     Indication: PERITONEAL NEOPLASM
     Dosage: 100 UG, BID
     Route: 058
  3. SANDOSTATIN LAR DEPOT [Suspect]
     Active Substance: OCTREOTIDE ACETATE
     Indication: PERITONEAL NEOPLASM
     Dosage: 30 MG, QMO
     Route: 030
     Dates: start: 20140228
  4. SANDOSTATIN LAR DEPOT [Suspect]
     Active Substance: OCTREOTIDE ACETATE
     Indication: OFF LABEL USE
     Dosage: 40 MG, QMO
     Route: 030
     Dates: end: 20140527
  5. CHEMOTHERAPEUTICS [Concomitant]
     Active Substance: UNSPECIFIED INGREDIENT
     Dosage: UNK UKN, UNK

REACTIONS (7)
  - Death [Fatal]
  - Intestinal obstruction [Unknown]
  - Incorrect dose administered [Unknown]
  - Small intestinal obstruction [Unknown]
  - Underdose [Unknown]
  - Urine output decreased [Unknown]
  - Weight decreased [Unknown]

NARRATIVE: CASE EVENT DATE: 20140523
